FAERS Safety Report 9536490 (Version 1)
Quarter: 2013Q2

REPORT INFORMATION
  Report Type: Spontaneous
  Country: US (occurrence: None)
  Receive Date: 20130510
  Receipt Date: 20130510
  Transmission Date: 20140414
  Serious: No
  Sender: FDA-Public Use
  Company Number: US-011334

PATIENT
  Sex: Male
  Weight: 72.58 kg

DRUGS (3)
  1. PICO-SALAX [Suspect]
     Indication: BOWEL PREPARATION
     Dosage: (TOOK PACKET MIXED WITH WATER AS INSTRUCTED AT 5:30PM AND SECOND PACKET AT 3:30AM ON 29 MAR 2013)
     Dates: start: 20130328, end: 20130329
  2. TAMSULOSIN [Concomitant]
  3. MIRALAX /00754501/ [Concomitant]

REACTIONS (1)
  - Drug ineffective [None]
